FAERS Safety Report 5066587-3 (Version None)
Quarter: 2006Q3

REPORT INFORMATION
  Report Type: 
  Country: None (occurrence: None)
  Receive Date: 20060801
  Receipt Date: 20060313
  Transmission Date: 20061208
  Serious: Yes (Hospitalization)
  Sender: FDA-Public Use
  Company Number: FR-AMGEN-UK172108

PATIENT
  Age: 4 Year
  Sex: Female
  Weight: 15 kg

DRUGS (9)
  1. KINERET [Suspect]
     Indication: JUVENILE ARTHRITIS
     Route: 058
     Dates: start: 20060114, end: 20060309
  2. OMEPRAZOLE [Concomitant]
     Route: 048
     Dates: end: 20060304
  3. CORTICOSTEROID NOS [Concomitant]
     Route: 065
  4. METHYLPREDNISOLONE [Concomitant]
     Route: 065
  5. IMMUNOGLOBULINS [Concomitant]
     Route: 065
  6. DUPHALAC [Concomitant]
     Route: 065
  7. SOLUPRED [Concomitant]
     Route: 048
  8. PHOSPHATE-SANDOZ [Concomitant]
     Route: 048
  9. CALCIUM CARBONATE/COLECALCIFEROL [Concomitant]
     Route: 048

REACTIONS (5)
  - ALANINE AMINOTRANSFERASE INCREASED [None]
  - ASPARTATE AMINOTRANSFERASE INCREASED [None]
  - AUTOIMMUNE HEPATITIS [None]
  - GAMMA-GLUTAMYLTRANSFERASE INCREASED [None]
  - HEPATITIS [None]
